FAERS Safety Report 7944952-1 (Version None)
Quarter: 2011Q4

REPORT INFORMATION
  Report Type: 
  Country: None (occurrence: None)
  Receive Date: 20111129
  Receipt Date: 20111128
  Transmission Date: 20120403
  Serious: Yes (Death, Other)
  Sender: FDA-Public Use
  Company Number: PHEH2011US00863

PATIENT
  Sex: Male

DRUGS (2)
  1. PREDNISONE TAB [Concomitant]
     Indication: CHRONIC OBSTRUCTIVE PULMONARY DISEASE
     Route: 048
  2. TOBI [Suspect]
     Indication: PSEUDOMONAS INFECTION
     Dosage: 300 MG, BID
     Dates: start: 20110514, end: 20110531

REACTIONS (5)
  - DEATH [None]
  - DYSPEPSIA [None]
  - DYSPNOEA [None]
  - THROAT IRRITATION [None]
  - PHARYNGEAL OEDEMA [None]
